FAERS Safety Report 7262467-3 (Version None)
Quarter: 2011Q1

REPORT INFORMATION
  Report Type: 
  Country: None (occurrence: None)
  Receive Date: 20110130
  Receipt Date: 20101129
  Transmission Date: 20110831
  Serious: No
  Sender: FDA-Public Use
  Company Number: US-ABBOTT-10P-163-0688157-00

PATIENT
  Age: 32 Year
  Sex: Male

DRUGS (3)
  1. HUMIRA [Suspect]
     Indication: CROHN'S DISEASE
     Dates: start: 20100701
  2. AZATHIOPRINE [Concomitant]
     Indication: CROHN'S DISEASE
     Route: 048
  3. UNKNOWN MEDICATION [Concomitant]
     Indication: CROHN'S DISEASE

REACTIONS (4)
  - NEPHROLITHIASIS [None]
  - INJECTION SITE HAEMORRHAGE [None]
  - FLANK PAIN [None]
  - NODULE [None]
